FAERS Safety Report 20097028 (Version 3)
Quarter: 2022Q1

REPORT INFORMATION
  Report Type: Report from Study
  Country: US (occurrence: US)
  Receive Date: 20211122
  Receipt Date: 20220215
  Transmission Date: 20220423
  Serious: Yes (Other)
  Sender: FDA-Public Use
  Company Number: US-APELLIS-01045

PATIENT
  Age: 63 Year
  Sex: Female

DRUGS (19)
  1. EMPAVELI [Suspect]
     Active Substance: PEGCETACOPLAN
     Indication: Paroxysmal nocturnal haemoglobinuria
     Dosage: TIME INTERVAL: 0.33333333 DAYS
     Route: 058
     Dates: start: 20210818
  2. EMPAVELI [Suspect]
     Active Substance: PEGCETACOPLAN
     Indication: Paroxysmal nocturnal haemoglobinuria
     Dosage: TIME INTERVAL: 0.33333333 DAYS
     Route: 058
     Dates: start: 20210818
  3. EMPAVELI [Suspect]
     Active Substance: PEGCETACOPLAN
     Indication: Paroxysmal nocturnal haemoglobinuria
     Route: 058
     Dates: start: 20210811
  4. 194682 (GLOBALC3Sep21): Cetirizine [Concomitant]
  5. 4477283 (GLOBALC3Sep21): Vitamin B-12 [Concomitant]
  6. 68435 (GLOBALC3Sep21): Synthroid [Concomitant]
     Indication: Product used for unknown indication
  7. 2360237 (GLOBALC3Sep21): Vitamin C [Concomitant]
     Indication: Product used for unknown indication
  8. 1328876 (GLOBALC3Sep21): Vitamin D3 [Concomitant]
     Indication: Product used for unknown indication
  9. 3954588 (GLOBALC3Sep21): Potassium chloride [Concomitant]
     Indication: Product used for unknown indication
  10. 3987614 (GLOBALC3Sep21): Multivitamin [Concomitant]
     Indication: Product used for unknown indication
  11. 1262333 (GLOBALC3Sep21): Aspirin [Concomitant]
     Indication: Product used for unknown indication
  12. 1325136 (GLOBALC3Sep21): Biotin [Concomitant]
     Indication: Product used for unknown indication
  13. 1325245 (GLOBALC3Sep21): Calcium [Concomitant]
     Indication: Product used for unknown indication
  14. 56877 (GLOBALC3Sep21): Celebrex [Concomitant]
     Indication: Product used for unknown indication
  15. 1325608 (GLOBALC3Sep21): Folic acid [Concomitant]
     Indication: Product used for unknown indication
  16. 1326486 (GLOBALC3Sep21): Hydrochlorothiazide [Concomitant]
     Indication: Product used for unknown indication
  17. 1326814 (GLOBALC3Sep21): Lorazepam [Concomitant]
     Indication: Product used for unknown indication
  18. 2352435 (GLOBALC3Sep21): Magnesium [Concomitant]
     Indication: Product used for unknown indication
  19. 69586 (GLOBALC3Sep21): Tessalon [Concomitant]
     Indication: Product used for unknown indication

REACTIONS (10)
  - Breakthrough haemolysis [Unknown]
  - Oesophageal spasm [Recovering/Resolving]
  - Dizziness [Recovering/Resolving]
  - COVID-19 [Unknown]
  - Cough [Not Recovered/Not Resolved]
  - Infection [Not Recovered/Not Resolved]
  - Blood urine present [Not Recovered/Not Resolved]
  - Haemoglobin decreased [Not Recovered/Not Resolved]
  - Jaundice [Recovering/Resolving]
  - Drug ineffective [Unknown]

NARRATIVE: CASE EVENT DATE: 20211001
